FAERS Safety Report 4288941-X (Version None)
Quarter: 2004Q1

REPORT INFORMATION
  Report Type: 
  Country: None (occurrence: None)
  Receive Date: 20040209
  Receipt Date: 20040129
  Transmission Date: 20041129
  Serious: Yes (Hospitalization)
  Sender: FDA-Public Use
  Company Number: PHNR2004AU00524

PATIENT
  Age: 80 Year
  Sex: Female
  Weight: 58 kg

DRUGS (8)
  1. LOPRESSOR [Suspect]
     Indication: ESSENTIAL HYPERTENSION
     Dosage: 50 MG, QD
     Route: 048
  2. ZESTRIL [Suspect]
     Indication: ESSENTIAL HYPERTENSION
     Dosage: 20 MG, QD
     Route: 048
  3. COLGOUT [Suspect]
     Indication: GOUT
     Dosage: 500 UG, QD
     Route: 048
  4. NATRILIX - SLOW RELEASE [Suspect]
     Indication: ESSENTIAL HYPERTENSION
     Dosage: 1.5 MG, QD
     Route: 048
     Dates: start: 20020801
  5. ARATAC [Suspect]
     Dosage: 200 MG, QD
     Route: 048
     Dates: end: 20020918
  6. VIOXX [Suspect]
     Indication: OSTEOARTHRITIS
     Dosage: 12.5 MG, QD
     Route: 048
     Dates: start: 20020101
  7. MONODUR [Suspect]
     Indication: MYOCARDIAL ISCHAEMIA
     Dosage: 60 MG, QD
     Route: 048
  8. COUMADIN [Suspect]
     Dosage: 3 MG, QD
     Route: 048

REACTIONS (6)
  - BRADYCARDIA [None]
  - CHEST PAIN [None]
  - DYSPNOEA [None]
  - NAUSEA [None]
  - PULMONARY FIBROSIS [None]
  - SYNCOPE [None]
